FAERS Safety Report 4538191-4 (Version None)
Quarter: 2004Q4

REPORT INFORMATION
  Report Type: 
  Country: None (occurrence: None)
  Receive Date: 20041221
  Receipt Date: 20041209
  Transmission Date: 20050328
  Serious: Yes (Death, Life-Threatening, Hospitalization, Other)
  Sender: FDA-Public Use
  Company Number: 2004BI001093

PATIENT
  Sex: Male

DRUGS (9)
  1. ZEVALIN [Suspect]
     Indication: NON-HODGKIN'S LYMPHOMA
     Dosage: SEE IMAGE
     Route: 042
     Dates: start: 20040901, end: 20040901
  2. ZEVALIN [Suspect]
     Indication: NON-HODGKIN'S LYMPHOMA
     Dosage: SEE IMAGE
     Route: 042
     Dates: start: 20040909, end: 20040909
  3. ZEVALIN [Suspect]
     Indication: NON-HODGKIN'S LYMPHOMA
     Dosage: SEE IMAGE
     Route: 042
     Dates: start: 20040909, end: 20040909
  4. CEFTRIAZONE [Concomitant]
  5. CLINDAMYCIN HCL [Concomitant]
  6. HYDROCHLORIDE [Concomitant]
  7. FILGRASTIM [Concomitant]
  8. LEVOFLOXACIN [Concomitant]
  9. FLUCONAZOLE [Concomitant]

REACTIONS (4)
  - LEUKOPENIA [None]
  - RENAL FAILURE [None]
  - SEPSIS [None]
  - THROMBOCYTOPENIA [None]
